FAERS Safety Report 8272176-X (Version None)
Quarter: 2012Q2

REPORT INFORMATION
  Report Type: 
  Country: None (occurrence: None)
  Receive Date: 20120410
  Receipt Date: 20120406
  Transmission Date: 20120825
  Serious: Yes (Other)
  Sender: FDA-Public Use
  Company Number: US-JNJFOC-20120403634

PATIENT
  Sex: Female

DRUGS (1)
  1. STELARA [Suspect]
     Indication: CROHN'S DISEASE
     Route: 058

REACTIONS (4)
  - OFF LABEL USE [None]
  - DYSARTHRIA [None]
  - VISION BLURRED [None]
  - SENSORY DISTURBANCE [None]
